FAERS Safety Report 8827418 (Version 2)
Quarter: 2012Q4

REPORT INFORMATION
  Report Type: 
  Country: US (occurrence: US)
  Receive Date: 20121008
  Receipt Date: 20121102
  Transmission Date: 20130627
  Serious: No
  Sender: FDA-Public Use
  Company Number: US-JNJFOC-20120911816

PATIENT
  Sex: Female

DRUGS (4)
  1. DURAGESIC [Suspect]
     Indication: FIBROMYALGIA
     Route: 062
  2. HYDROCODONE [Concomitant]
     Indication: PAIN
     Dosage: 10-60 mg, 1 every 4-6 hours as needed
     Route: 048
  3. LYRICA [Concomitant]
     Indication: PAIN
     Dosage: 75 mg upto 3 times as needed
     Route: 048
  4. KLONOPIN [Concomitant]
     Indication: ANXIETY
     Dosage: upto twice daily as needed
     Route: 048
     Dates: start: 1990

REACTIONS (4)
  - Weight decreased [Not Recovered/Not Resolved]
  - Drug dose omission [Not Recovered/Not Resolved]
  - Pain [Not Recovered/Not Resolved]
  - Anxiety [Not Recovered/Not Resolved]
